FAERS Safety Report 8370816-8 (Version None)
Quarter: 2012Q2

REPORT INFORMATION
  Report Type: 
  Country: None (occurrence: None)
  Receive Date: 20120518
  Receipt Date: 20110303
  Transmission Date: 20120825
  Serious: No
  Sender: FDA-Public Use
  Company Number: US-ASTRAZENECA-2011SE18694

PATIENT
  Sex: Female

DRUGS (3)
  1. NORVASC [Concomitant]
     Dosage: UNKNOWN
  2. ANTIHISTAMINES [Concomitant]
     Dosage: UNKNOWN
  3. PRILOSEC OTC [Suspect]
     Route: 048

REACTIONS (1)
  - ARTHRALGIA [None]
